FAERS Safety Report 8192817 (Version 4)
Quarter: 2012Q4

REPORT INFORMATION
  Report Type: 
  Country: AU (occurrence: AU)
  Receive Date: 20111021
  Receipt Date: 20120905
  Transmission Date: 20130627
  Serious: Yes (Life-Threatening, Other)
  Sender: FDA-Public Use
  Company Number: AU-PURDUE-USA-2011-0076234

PATIENT
  Sex: Female

DRUGS (10)
  1. OXYCONTIN TABLETS [Suspect]
     Indication: ANALGESIC THERAPY
     Dosage: 50 mg, bid
     Route: 048
     Dates: start: 201012, end: 20110303
  2. OXYCONTIN TABLETS [Suspect]
     Indication: PAIN
  3. CITALOPRAM [Suspect]
     Indication: DEPRESSION
     Dosage: 20 mg, daily
     Route: 048
     Dates: start: 20110209
  4. OXYCODONE HCL IMMEDIATE RELEASE (91-490) [Suspect]
     Indication: PAIN
     Dosage: 5 mg, UNK
     Route: 048
  5. ESOMEPRAZOLE [Concomitant]
     Indication: PRODUCT USED FOR UNKNOWN INDICATION
     Dosage: 40 mg, bid
     Route: 048
     Dates: end: 20110303
  6. ESOMEPRAZOLE [Concomitant]
     Dosage: UNK
     Dates: start: 20110303
  7. ESOMEPRAZOLE [Concomitant]
     Dosage: 40 mg, UNK
  8. TEMAZEPAM [Concomitant]
     Indication: PRODUCT USED FOR UNKNOWN INDICATION
     Dosage: 10 mg, UNK
     Route: 048
  9. COLOXYL WITH SENNA [Concomitant]
     Indication: PRODUCT USED FOR UNKNOWN INDICATION
     Dosage: 100mg/16mg, bid
     Route: 048
  10. DIAZEPAM [Concomitant]
     Indication: RESTLESS LEGS SYNDROME

REACTIONS (6)
  - Serotonin syndrome [Recovered/Resolved]
  - Drug interaction [Recovered/Resolved]
  - Coordination abnormal [Recovered/Resolved]
  - Tremor [Recovered/Resolved]
  - Asthenia [Recovered/Resolved]
  - Confusional state [Recovered/Resolved]
